FAERS Safety Report 14964629 (Version 1)
Quarter: 2018Q2

REPORT INFORMATION
  Report Type: Spontaneous
  Country: US (occurrence: US)
  Receive Date: 20180601
  Receipt Date: 20180601
  Transmission Date: 20180711
  Serious: Yes (Hospitalization)
  Sender: FDA-Public Use
  Company Number: US-MYLANLABS-2018M1036458

PATIENT
  Age: 32 Year
  Sex: Female

DRUGS (1)
  1. METHADONE [Suspect]
     Active Substance: METHADONE HYDROCHLORIDE
     Indication: ABDOMINAL PAIN
     Route: 065

REACTIONS (4)
  - Intestinal obstruction [Unknown]
  - Intussusception [Unknown]
  - Gastrointestinal necrosis [Unknown]
  - Narcotic bowel syndrome [Unknown]
